FAERS Safety Report 11485070 (Version 2)
Quarter: 2015Q3

REPORT INFORMATION
  Report Type: Spontaneous
  Country: US (occurrence: US)
  Receive Date: 20150903
  Receipt Date: 20150903
  Transmission Date: 20151125
  Serious: No
  Sender: FDA-Public Use
  Company Number: US-ELI_LILLY_AND_COMPANY-US201205003043

PATIENT
  Age: 64 Year
  Sex: Female

DRUGS (4)
  1. HYDROCODONE [Concomitant]
     Active Substance: HYDROCODONE
  2. CYMBALTA [Suspect]
     Active Substance: DULOXETINE HYDROCHLORIDE
     Dosage: UNK, UNKNOWN
  3. REMERON                                 /USA/ [Concomitant]
     Indication: APPETITE DISORDER
     Dosage: UNK
     Route: 048
     Dates: start: 201204, end: 201204
  4. TOPROL XL [Concomitant]
     Active Substance: METOPROLOL SUCCINATE

REACTIONS (7)
  - Feeling jittery [Recovered/Resolved]
  - Restless legs syndrome [Recovered/Resolved]
  - Dizziness [Recovered/Resolved]
  - Feeling abnormal [Recovered/Resolved]
  - Staring [Recovered/Resolved]
  - Musculoskeletal stiffness [Recovered/Resolved]
  - Muscle tightness [Recovered/Resolved]
